FAERS Safety Report 23479932 (Version 2)
Quarter: 2025Q1

REPORT INFORMATION
  Report Type: Spontaneous
  Country: US (occurrence: US)
  Receive Date: 20240205
  Receipt Date: 20250227
  Transmission Date: 20250409
  Serious: No
  Sender: UCB
  Company Number: US-UCBSA-2023048190

PATIENT
  Age: 24 Year
  Sex: Female

DRUGS (10)
  1. LEVETIRACETAM [Suspect]
     Active Substance: LEVETIRACETAM
     Indication: Seizure
  2. LEVOTHYROXINE [Concomitant]
     Active Substance: LEVOTHYROXINE
     Indication: Hypothyroidism
  3. CARNITINE [Concomitant]
     Active Substance: CARNITINE
     Indication: Product used for unknown indication
     Dosage: 300 MILLIGRAM, 3X/DAY (TID)
  4. CARNITINE [Concomitant]
     Active Substance: CARNITINE
     Dosage: 500 MILLIGRAM, 3X/DAY (TID)
  5. THIAMINE [Concomitant]
     Active Substance: THIAMINE
     Indication: Product used for unknown indication
  6. THIAMINE [Concomitant]
     Active Substance: THIAMINE
  7. BIOTIN [Concomitant]
     Active Substance: BIOTIN
     Indication: Product used for unknown indication
  8. VITAMIN B2 [Concomitant]
     Active Substance: RIBOFLAVIN
     Indication: Product used for unknown indication
  9. COENZYME Q10 [Concomitant]
     Active Substance: DIETARY SUPPLEMENT\UBIDECARENONE
     Indication: Product used for unknown indication
     Dosage: 120 MILLIGRAM, 2X/DAY (BID)
  10. CLONAZEPAM [Concomitant]
     Active Substance: CLONAZEPAM
     Indication: Tremor

REACTIONS (1)
  - Drug ineffective [Unknown]
